FAERS Safety Report 19175911 (Version 1)
Quarter: 2021Q2

REPORT INFORMATION
  Report Type: Spontaneous
  Country: DE (occurrence: DE)
  Receive Date: 20210423
  Receipt Date: 20210423
  Transmission Date: 20210717
  Serious: Yes (Other)
  Sender: FDA-Public Use
  Company Number: NVSC2021DE089430

PATIENT
  Age: 79 Year
  Sex: Female

DRUGS (1)
  1. TASIGNA [Suspect]
     Active Substance: NILOTINIB
     Indication: CHRONIC MYELOID LEUKAEMIA
     Dosage: 300 MG, BID
     Route: 065
     Dates: start: 2015

REACTIONS (5)
  - Vascular dementia [Unknown]
  - Fluid retention [Unknown]
  - Arthralgia [Unknown]
  - Osteoarthritis [Unknown]
  - Peripheral arterial occlusive disease [Unknown]
